FAERS Safety Report 25519760 (Version 4)
Quarter: 2025Q4

REPORT INFORMATION
  Report Type: Report from Study
  Country: CA (occurrence: CA)
  Receive Date: 20250704
  Receipt Date: 20251112
  Transmission Date: 20260118
  Serious: Yes (Other)
  Sender: TEVA
  Company Number: CA-TEVA-VS-3347872

PATIENT
  Age: 32 Year
  Sex: Female

DRUGS (5)
  1. AJOVY [Suspect]
     Active Substance: FREMANEZUMAB-VFRM
     Indication: Migraine prophylaxis
     Route: 058
     Dates: start: 20250612, end: 2025
  2. TOPIRAMATE [Concomitant]
     Active Substance: TOPIRAMATE
     Indication: Product used for unknown indication
     Dosage: DISCONTINUED
  3. GABAPENTIN [Concomitant]
     Active Substance: GABAPENTIN
     Indication: Product used for unknown indication
     Dosage: DISCONTINUED
  4. METOPROLOL [Concomitant]
     Active Substance: METOPROLOL
     Indication: Product used for unknown indication
     Dosage: DISCONTINUED
  5. VENLAFAXINE [Concomitant]
     Active Substance: VENLAFAXINE HYDROCHLORIDE
     Indication: Product used for unknown indication
     Dosage: DISCONTINUED

REACTIONS (18)
  - Autonomic nervous system imbalance [Unknown]
  - Blood pressure fluctuation [Unknown]
  - Orthostatic intolerance [Unknown]
  - Brain fog [Unknown]
  - Dizziness [Unknown]
  - Urticaria [Unknown]
  - Dizziness postural [Unknown]
  - Pain in extremity [Unknown]
  - Neck pain [Unknown]
  - Spinal pain [Unknown]
  - Temperature regulation disorder [Unknown]
  - Dyspnoea exertional [Unknown]
  - Tremor [Unknown]
  - Chest pain [Unknown]
  - Defaecation urgency [Unknown]
  - Psychiatric symptom [Unknown]
  - Product use issue [Unknown]
  - Anxiety [Unknown]

NARRATIVE: CASE EVENT DATE: 20250101
